FAERS Safety Report 4801680-9 (Version None)
Quarter: 2005Q4

REPORT INFORMATION
  Report Type: 
  Country: None (occurrence: None)
  Receive Date: 20051018
  Receipt Date: 20051006
  Transmission Date: 20060501
  Serious: Yes (Hospitalization, Other)
  Sender: FDA-Public Use
  Company Number: US-GLAXOSMITHKLINE-A0577392A

PATIENT
  Age: 61 Year
  Sex: Female

DRUGS (15)
  1. PAXIL CR [Suspect]
     Indication: DEPRESSION
     Dosage: 25MG TWICE PER DAY
     Route: 048
     Dates: start: 20041214, end: 20041215
  2. LAMICTAL [Suspect]
     Indication: DRUG USE FOR UNKNOWN INDICATION
     Dosage: 150MG THREE TIMES PER DAY
     Route: 048
     Dates: start: 20020601
  3. UNSPECIFIED MEDICATION [Concomitant]
  4. TEGRETOL [Concomitant]
  5. NEXIUM [Concomitant]
  6. ATENOLOL [Concomitant]
  7. LIPITOR [Concomitant]
  8. DEMADEX [Concomitant]
  9. DETROL LA [Concomitant]
  10. EFFEXOR [Concomitant]
  11. PREMARIN [Concomitant]
  12. FORTEO [Concomitant]
  13. DARVOCET [Concomitant]
  14. LEUCOVORIN [Concomitant]
  15. PAXIL [Concomitant]
     Indication: DEPRESSION
     Route: 065

REACTIONS (4)
  - ABNORMAL DREAMS [None]
  - ANAEMIA [None]
  - CRYING [None]
  - FLUID RETENTION [None]
